FAERS Safety Report 6225059-0 (Version None)
Quarter: 2009Q2

REPORT INFORMATION
  Report Type: 
  Country: None (occurrence: None)
  Receive Date: 20090612
  Receipt Date: 20090406
  Transmission Date: 20091009
  Serious: No
  Sender: FDA-Public Use
  Company Number: US-ABBOTT-09P-163-0566820-00

PATIENT
  Sex: Male
  Weight: 74.91 kg

DRUGS (4)
  1. HUMIRA [Suspect]
     Indication: PSORIASIS
     Dates: start: 20081001, end: 20090407
  2. HUMIRA [Suspect]
     Indication: PSORIATIC ARTHROPATHY
  3. MOBIC [Concomitant]
     Indication: DRUG USE FOR UNKNOWN INDICATION
  4. DORYX [Concomitant]
     Indication: ACNE
     Dates: end: 20090401

REACTIONS (4)
  - HYPOAESTHESIA [None]
  - JOINT SWELLING [None]
  - LOCAL SWELLING [None]
  - PSORIASIS [None]
